FAERS Safety Report 8093097-1 (Version None)
Quarter: 2011Q4

REPORT INFORMATION
  Report Type: 
  Country: None (occurrence: None)
  Receive Date: 20111222
  Receipt Date: 20111028
  Transmission Date: 20120403
  Serious: Yes (Hospitalization)
  Sender: FDA-Public Use
  Company Number: UTC-010021

PATIENT
  Age: 80 Year
  Sex: Female
  Weight: 68.18 kg

DRUGS (5)
  1. TYVASO [Suspect]
     Indication: COR PULMONALE CHRONIC
     Dosage: 96 MCG  (24 MCG, 4 IN 1 D), INHALATION
     Route: 055
     Dates: start: 20110303
  2. REVATIO [Concomitant]
  3. TRACLEER [Concomitant]
  4. COUMADIN [Concomitant]
  5. DIURETICS (DIURETICS) [Concomitant]

REACTIONS (1)
  - PNEUMONIA [None]
